FAERS Safety Report 21907892 (Version 2)
Quarter: 2023Q1

REPORT INFORMATION
  Report Type: Report from Study
  Country: US (occurrence: US)
  Receive Date: 20230125
  Receipt Date: 20230131
  Transmission Date: 20230418
  Serious: No
  Sender: FDA-Public Use
  Company Number: US-002147023-NVSC2023US012171

PATIENT
  Sex: Female

DRUGS (1)
  1. COSENTYX [Suspect]
     Active Substance: SECUKINUMAB
     Indication: Psoriasis
     Dosage: 300 MG, QMO (2 PENS)
     Route: 058
     Dates: start: 2020

REACTIONS (4)
  - Psoriasis [Unknown]
  - Skin exfoliation [Not Recovered/Not Resolved]
  - Pruritus [Unknown]
  - Erythema [Not Recovered/Not Resolved]
